FAERS Safety Report 6648997-3 (Version None)
Quarter: 2010Q1

REPORT INFORMATION
  Report Type: 
  Country: None (occurrence: None)
  Receive Date: 20100324
  Receipt Date: 20100310
  Transmission Date: 20100710
  Serious: No
  Sender: FDA-Public Use
  Company Number: US-B.I. PHARMACEUTICALS,INC./RIDGEFIELD-2010-BP-02873BP

PATIENT
  Sex: Male

DRUGS (6)
  1. MIRAPEX [Suspect]
     Indication: RESTLESS LEGS SYNDROME
     Dosage: 0.5 MG
     Route: 048
  2. LISINOPRIL [Concomitant]
  3. NEXIUM [Concomitant]
     Indication: GASTROOESOPHAGEAL REFLUX DISEASE
  4. EFFEXOR [Concomitant]
     Indication: GASTROOESOPHAGEAL REFLUX DISEASE
  5. AMBIEN [Concomitant]
     Indication: SLEEP DISORDER
  6. CELEBREX [Concomitant]

REACTIONS (2)
  - MALE SEXUAL DYSFUNCTION [None]
  - PENIS DISORDER [None]
